FAERS Safety Report 10669515 (Version 1)
Quarter: 2014Q4

REPORT INFORMATION
  Report Type: Spontaneous
  Country: US (occurrence: US)
  Receive Date: 20141222
  Receipt Date: 20141222
  Transmission Date: 20150529
  Serious: No
  Sender: FDA-Public Use
  Company Number: US-SA-2014SA156304

PATIENT
  Sex: Female
  Weight: 51.25 kg

DRUGS (10)
  1. CYMBALTA [Concomitant]
     Active Substance: DULOXETINE HYDROCHLORIDE
  2. MIRALAX [Concomitant]
     Active Substance: POLYETHYLENE GLYCOL 3350
  3. LAMICTAL [Concomitant]
     Active Substance: LAMOTRIGINE
  4. BACLOFEN. [Concomitant]
     Active Substance: BACLOFEN
  5. ATIVAN [Concomitant]
     Active Substance: LORAZEPAM
  6. AUBAGIO [Suspect]
     Active Substance: TERIFLUNOMIDE
     Indication: MULTIPLE SCLEROSIS
     Route: 048
     Dates: start: 2014
  7. SEROQUEL [Concomitant]
     Active Substance: QUETIAPINE FUMARATE
  8. HYDROXYZINE [Concomitant]
     Active Substance: HYDROXYZINE\HYDROXYZINE HYDROCHLORIDE
  9. AMITIZA [Concomitant]
     Active Substance: LUBIPROSTONE
  10. OMEPRAZOLE. [Concomitant]
     Active Substance: OMEPRAZOLE

REACTIONS (1)
  - Gait disturbance [Unknown]
